FAERS Safety Report 8337428-3 (Version None)
Quarter: 2012Q2

REPORT INFORMATION
  Report Type: 
  Country: None (occurrence: None)
  Receive Date: 20120504
  Receipt Date: 19910225
  Transmission Date: 20120825
  Serious: Yes (Hospitalization)
  Sender: FDA-Public Use
  Company Number: FR-ROCHE-16101

PATIENT
  Age: 72 Year
  Sex: Female

DRUGS (3)
  1. TICLID [Suspect]
     Indication: PRODUCT USED FOR UNKNOWN INDICATION
     Route: 048
  2. O-(BETA-HYDROXY-ETHYL)-RUTOSIDE [Concomitant]
  3. RUTOSIDE [Concomitant]

REACTIONS (4)
  - HAEMORRHAGE [None]
  - PETECHIAE [None]
  - ANAEMIA [None]
  - BONE MARROW FAILURE [None]
